FAERS Safety Report 10191083 (Version 1)
Quarter: 2014Q2

REPORT INFORMATION
  Report Type: Report from Study
  Country: FR (occurrence: FR)
  Receive Date: 20140523
  Receipt Date: 20140523
  Transmission Date: 20141212
  Serious: Yes (Hospitalization)
  Sender: FDA-Public Use
  Company Number: FR-MYLANLABS-2014S1011245

PATIENT
  Age: 22 Year
  Sex: Male

DRUGS (2)
  1. CYAMEMAZINE [Suspect]
     Route: 065
  2. LOXAPINE [Suspect]
     Route: 065

REACTIONS (1)
  - Acute generalised exanthematous pustulosis [Recovered/Resolved]
